FAERS Safety Report 16136489 (Version 2)
Quarter: 2019Q2

REPORT INFORMATION
  Report Type: Spontaneous
  Country: US (occurrence: US)
  Receive Date: 20190331
  Receipt Date: 20190510
  Transmission Date: 20190711
  Serious: Yes (Hospitalization, Other)
  Sender: FDA-Public Use
  Company Number: US-009507513-1903USA011351

PATIENT
  Age: 28 Year
  Sex: Female
  Weight: 53.52 kg

DRUGS (2)
  1. NEXPLANON [Suspect]
     Active Substance: ETONOGESTREL
     Dosage: 1 IMPLANT IN LEFT ARM 12CM ABOVE THE ELBOW
     Route: 059
     Dates: start: 20181204, end: 20190326
  2. NEXPLANON [Suspect]
     Active Substance: ETONOGESTREL
     Indication: MENORRHAGIA
     Dosage: 1 IMPLANT IN LEFT ARM
     Route: 059
     Dates: start: 20160531

REACTIONS (19)
  - Post procedural haemorrhage [Recovered/Resolved]
  - Overdose [Unknown]
  - Abortion induced [Recovered/Resolved]
  - Pain [Not Recovered/Not Resolved]
  - Pregnancy with implant contraceptive [Recovered/Resolved]
  - Von Willebrand^s disease [Not Recovered/Not Resolved]
  - Product use in unapproved indication [Unknown]
  - Implant site fibrosis [Unknown]
  - Unintended pregnancy [Recovered/Resolved]
  - Contusion [Unknown]
  - Endometriosis [Not Recovered/Not Resolved]
  - Expired product administered [Unknown]
  - Haematoma [Not Recovered/Not Resolved]
  - Complication of device removal [Not Recovered/Not Resolved]
  - Nausea [Unknown]
  - General anaesthesia [Recovered/Resolved]
  - Feeling abnormal [Not Recovered/Not Resolved]
  - Gastrointestinal disorder [Unknown]
  - Exploratory operation [Unknown]

NARRATIVE: CASE EVENT DATE: 20160531
